FAERS Safety Report 9521378 (Version 1)
Quarter: 2013Q3

REPORT INFORMATION
  Report Type: Report from Study
  Country: CA (occurrence: CA)
  Receive Date: 20130913
  Receipt Date: 20130913
  Transmission Date: 20140515
  Serious: Yes (Hospitalization)
  Sender: FDA-Public Use
  Company Number: CA-JNJFOC-20130905968

PATIENT
  Age: 57 Year
  Sex: Female
  Weight: 62.8 kg

DRUGS (3)
  1. REMICADE [Suspect]
     Indication: COLITIS ULCERATIVE
     Route: 042
     Dates: start: 20120615
  2. ASACOL [Concomitant]
  3. PREDNISONE [Concomitant]

REACTIONS (4)
  - Pain [Recovered/Resolved]
  - Abdominal distension [Recovered/Resolved]
  - Urine output decreased [Recovered/Resolved]
  - Infrequent bowel movements [Recovered/Resolved]
